FAERS Safety Report 5786521-8 (Version None)
Quarter: 2008Q2

REPORT INFORMATION
  Report Type: 
  Country: None (occurrence: None)
  Receive Date: 20080624
  Receipt Date: 20080609
  Transmission Date: 20081010
  Serious: No
  Sender: FDA-Public Use
  Company Number: US-BOEHRINGER INGELHEIM GMBH, GERMANY-2008-BP-09105BP

PATIENT
  Age: 71 Year
  Sex: Female

DRUGS (9)
  1. COMBIVENT [Suspect]
     Indication: CHRONIC OBSTRUCTIVE PULMONARY DISEASE
     Route: 055
     Dates: start: 20080606, end: 20080608
  2. ZOCOR [Concomitant]
     Indication: BLOOD CHOLESTEROL INCREASED
  3. VASOTEC [Concomitant]
     Indication: HYPERTENSION
  4. ASPIRIN [Concomitant]
  5. CELEXA [Concomitant]
     Indication: DEPRESSION
  6. METFORMIN HCL [Concomitant]
     Indication: DIABETES MELLITUS
  7. TENORMIN [Concomitant]
     Indication: CARDIAC DISORDER
  8. BONIVA [Concomitant]
     Indication: OSTEOPOROSIS
  9. HYDROCHLOROTHIAZIDE [Concomitant]
     Indication: HYPERTENSION

REACTIONS (1)
  - CHEST DISCOMFORT [None]
